FAERS Safety Report 4312090-5 (Version None)
Quarter: 2004Q1

REPORT INFORMATION
  Report Type: 
  Country: None (occurrence: None)
  Receive Date: 20040303
  Receipt Date: 20040218
  Transmission Date: 20041129
  Serious: Yes (Hospitalization)
  Sender: FDA-Public Use
  Company Number: 2004JP000284

PATIENT
  Age: 31 Year
  Sex: Male

DRUGS (1)
  1. PROGRAF [Suspect]
     Indication: BONE MARROW TRANSPLANT
     Dosage: 2.25 MG, INTRAVENOUS
     Route: 042
     Dates: start: 20040119, end: 20040214

REACTIONS (1)
  - DEPRESSED LEVEL OF CONSCIOUSNESS [None]
